FAERS Safety Report 8500219-4 (Version None)
Quarter: 2012Q3

REPORT INFORMATION
  Report Type: 
  Country: None (occurrence: None)
  Receive Date: 20120710
  Receipt Date: 20120706
  Transmission Date: 20120928
  Serious: Yes (Death, Other)
  Sender: FDA-Public Use
  Company Number: US-CELGENEUS-163-21880-12062093

PATIENT
  Sex: Female

DRUGS (4)
  1. REVLIMID [Suspect]
     Indication: MULTIPLE MYELOMA
     Dosage: 5 MILLIGRAM
     Route: 048
     Dates: start: 20100604, end: 20120608
  2. COUMADIN [Concomitant]
     Dosage: 2 MILLIGRAM
     Route: 048
  3. MEGACE ES [Concomitant]
     Route: 048
  4. NEXIUM [Concomitant]
     Dosage: 20 MILLIGRAM
     Route: 048

REACTIONS (1)
  - CEREBROVASCULAR ACCIDENT [None]
